FAERS Safety Report 4525887-3 (Version None)
Quarter: 2004Q4

REPORT INFORMATION
  Report Type: 
  Country: None (occurrence: None)
  Receive Date: 20041124
  Receipt Date: 20040330
  Transmission Date: 20050328
  Serious: Yes (Hospitalization, Other)
  Sender: FDA-Public Use
  Company Number: 2004009406

PATIENT
  Age: 61 Year
  Sex: Male
  Weight: 93.4 kg

DRUGS (3)
  1. TIKOSYN [Suspect]
     Indication: ILL-DEFINED DISORDER
     Dosage: 1000 MCG (BID), ORAL
     Route: 048
  2. ATORVASTATIN (ATORVASTATIN) [Concomitant]
  3. WARFARIN SODIUM [Concomitant]

REACTIONS (1)
  - ATRIAL FIBRILLATION [None]
